FAERS Safety Report 8958485 (Version 1)
Quarter: 2012Q4

REPORT INFORMATION
  Report Type: Spontaneous
  Country: US (occurrence: None)
  Receive Date: 20121205
  Receipt Date: 20121205
  Transmission Date: 20130627
  Serious: No
  Sender: FDA-Public Use
  Company Number: None

PATIENT
  Age: 75 Year
  Sex: Female

DRUGS (1)
  1. LEVOFLOXACIN [Suspect]
     Indication: BLADDER INFECTION
     Dosage: 500 mg     1      mouth
     Route: 048
     Dates: start: 20121102, end: 20121120

REACTIONS (3)
  - Arthralgia [None]
  - Pain in extremity [None]
  - Bone pain [None]
